FAERS Safety Report 25586384 (Version 1)
Quarter: 2025Q3

REPORT INFORMATION
  Report Type: Spontaneous
  Country: US (occurrence: None)
  Receive Date: 20250721
  Receipt Date: 20250721
  Transmission Date: 20251021
  Serious: Yes (Other)
  Sender: FDA-CTU
  Company Number: None

PATIENT
  Sex: Female

DRUGS (10)
  1. TERIFLUNOMIDE [Suspect]
     Active Substance: TERIFLUNOMIDE
     Dosage: FREQUENCY : DAILY;?
     Route: 048
     Dates: start: 20250107
  2. CELEBREX [Concomitant]
     Active Substance: CELECOXIB
  3. COPAXONE [Concomitant]
     Active Substance: GLATIRAMER ACETATE
  4. DIMETHYL FUMARATE [Concomitant]
     Active Substance: DIMETHYL FUMARATE
  5. FISH OIL [Concomitant]
     Active Substance: FISH OIL
  6. MIRABEGRON [Concomitant]
     Active Substance: MIRABEGRON
  7. PREVACID [Concomitant]
     Active Substance: LANSOPRAZOLE
  8. TAMSULOSIN [Concomitant]
     Active Substance: TAMSULOSIN
  9. TERIFLUNOMIDE [Concomitant]
     Active Substance: TERIFLUNOMIDE
  10. VITAMIN B COMPLEX [Concomitant]
     Active Substance: CYANOCOBALAMIN\DEXPANTHENOL\NIACINAMIDE\PYRIDOXINE HYDROCHLORIDE\RIBOFLAVIN 5^-PHOSPHATE SODIUM\THIA

REACTIONS (1)
  - Drug hypersensitivity [None]
